FAERS Safety Report 9559223 (Version 4)
Quarter: 2013Q4

REPORT INFORMATION
  Report Type: Spontaneous
  Country: US (occurrence: None)
  Receive Date: 20130924
  Receipt Date: 20131031
  Transmission Date: 20140711
  Serious: Yes (Other)
  Sender: FDA-Public Use
  Company Number: ADR-2013-01678

PATIENT
  Sex: Female

DRUGS (1)
  1. BACLOFEN [Suspect]
     Indication: MUSCLE SPASTICITY

REACTIONS (9)
  - Fall [None]
  - Joint injury [None]
  - Excoriation [None]
  - Infection [None]
  - Muscle spasticity [None]
  - Hypotonia [None]
  - Gait disturbance [None]
  - Muscle tightness [None]
  - Psoriasis [None]
